FAERS Safety Report 6925398-1 (Version None)
Quarter: 2010Q3

REPORT INFORMATION
  Report Type: 
  Country: None (occurrence: None)
  Receive Date: 20100810
  Receipt Date: 20100729
  Transmission Date: 20110219
  Serious: Yes (Hospitalization)
  Sender: FDA-Public Use
  Company Number: 011260

PATIENT
  Sex: Female
  Weight: 80 kg

DRUGS (6)
  1. CERTOLIZUMAB PEGOL (CERTOLIZUMAB PEGOL) [Suspect]
     Dosage: (400 MG, ONCE SUBCUTANEOUS)
     Route: 058
     Dates: start: 20100412, end: 20100412
  2. PREDNISOLON /00016201/ [Concomitant]
  3. DECORTIN [Concomitant]
  4. IBUPROFEN [Concomitant]
  5. PANTOZOL /01263202/ [Concomitant]
  6. IDEOS /00944201/ [Concomitant]

REACTIONS (3)
  - ARTHRALGIA [None]
  - ARTHROPATHY [None]
  - SYNOVIAL RUPTURE [None]
